FAERS Safety Report 8790282 (Version 2)
Quarter: 2013Q1

REPORT INFORMATION
  Report Type: Spontaneous
  Country: US (occurrence: US)
  Receive Date: 20120917
  Receipt Date: 20130110
  Transmission Date: 20140127
  Serious: Yes (Hospitalization)
  Sender: FDA-Public Use
  Company Number: US-BAYER-2012-096061

PATIENT
  Age: 23 Year
  Sex: Female
  Weight: 104 kg

DRUGS (2)
  1. YAZ [Suspect]
     Dosage: UNK
     Dates: start: 200708, end: 200711
  2. YAZ [Suspect]
     Dosage: UNK
     Dates: start: 200801, end: 200802

REACTIONS (6)
  - Deep vein thrombosis [None]
  - Injury [None]
  - Thrombosis [None]
  - Limb injury [None]
  - Limb injury [None]
  - Pain [None]
